FAERS Safety Report 4339826-1 (Version None)
Quarter: 2004Q2

REPORT INFORMATION
  Report Type: 
  Country: None (occurrence: None)
  Receive Date: 20040415
  Receipt Date: 20040415
  Transmission Date: 20050107
  Serious: Yes (Hospitalization)
  Sender: FDA-Public Use
  Company Number: None

PATIENT
  Age: 42 Year
  Sex: Male
  Weight: 80.2 kg

DRUGS (1)
  1. MITOMYCIN C 70 MG INTRA PERITONEAL [Suspect]
     Indication: PERITONEAL MESOTHELIOMA MALIGNANT
     Dosage: INTRAPERITONEAL (X1)
     Route: 033
     Dates: start: 20040325

REACTIONS (1)
  - PULMONARY EMBOLISM [None]
